FAERS Safety Report 5218223-0 (Version None)
Quarter: 2007Q1

REPORT INFORMATION
  Report Type: 
  Country: None (occurrence: None)
  Receive Date: 20070124
  Receipt Date: 20070117
  Transmission Date: 20070707
  Serious: Yes (Hospitalization)
  Sender: FDA-Public Use
  Company Number: GB-PFIZER INC-2007004975

PATIENT
  Age: 55 Year
  Sex: Male
  Weight: 63.5 kg

DRUGS (4)
  1. LIPITOR [Suspect]
     Indication: HYPERCHOLESTEROLAEMIA
     Route: 048
     Dates: start: 20060401, end: 20060915
  2. ASPIRIN [Concomitant]
     Route: 048
  3. VITAMIN CAP [Concomitant]
     Route: 048
  4. ALL OTHER THERAPEUTIC PRODUCTS [Concomitant]

REACTIONS (2)
  - CELLULITIS [None]
  - LIVER FUNCTION TEST ABNORMAL [None]
